FAERS Safety Report 16919086 (Version 1)
Quarter: 2019Q4

REPORT INFORMATION
  Report Type: Spontaneous
  Country: GB (occurrence: GB)
  Receive Date: 20191015
  Receipt Date: 20191015
  Transmission Date: 20200122
  Serious: Yes (Other)
  Sender: FDA-Public Use
  Company Number: GB-MYLANLABS-2019M1095620

PATIENT
  Age: 49 Year
  Sex: Female
  Weight: 60 kg

DRUGS (9)
  1. TRILEPTAL [Concomitant]
     Active Substance: OXCARBAZEPINE
     Dosage: 3 DOSAGE FORM, QD, MORNING AND ANOTHER TIME
     Dates: start: 20190123
  2. TOPIRAMATE. [Suspect]
     Active Substance: TOPIRAMATE
     Indication: PRODUCT USED FOR UNKNOWN INDICATION
     Dosage: 25 MILLIGRAM
     Dates: start: 20190508
  3. AZELAIC ACID. [Concomitant]
     Active Substance: AZELAIC ACID
     Dosage: 1 DOSAGE FORM, PM
     Dates: start: 20180514
  4. LACOSAMIDE. [Concomitant]
     Active Substance: LACOSAMIDE
     Dosage: 2 DOSAGE FORM, QD
     Dates: start: 20180718
  5. HYDROXOCOBALAMIN [Concomitant]
     Active Substance: HYDROXOCOBALAMIN
     Dosage: USE AS DIRECTED
     Dates: start: 20190311
  6. ZONISAMIDE. [Concomitant]
     Active Substance: ZONISAMIDE
     Dosage: INCREASE BY 25MG EVERY WEEK
     Dates: start: 20190320, end: 20190417
  7. CLOTRIMAZOLE. [Concomitant]
     Active Substance: CLOTRIMAZOLE
     Dosage: UNK, QD
     Dates: start: 20190426, end: 20190427
  8. ZONEGRAN [Concomitant]
     Active Substance: ZONISAMIDE
     Dosage: INCREASE BY 25MG EVERY WEEK
     Dates: start: 20190322, end: 20190419
  9. DIAZEPAM. [Concomitant]
     Active Substance: DIAZEPAM
     Dosage: 1 DOSAGE FORM, AS NECESSARY
     Dates: start: 20180514

REACTIONS (1)
  - Aphasia [Unknown]

NARRATIVE: CASE EVENT DATE: 20190508
